FAERS Safety Report 13919206 (Version 2)
Quarter: 2019Q4

REPORT INFORMATION
  Report Type: Report from Study
  Country: US (occurrence: US)
  Receive Date: 20170830
  Receipt Date: 20191015
  Transmission Date: 20200122
  Serious: Yes (Other)
  Sender: FDA-Public Use
  Company Number: US-ALEXION PHARMACEUTICALS INC.-A201709600

PATIENT
  Sex: Male
  Weight: 168.3 kg

DRUGS (5)
  1. SOLIRIS [Suspect]
     Active Substance: ECULIZUMAB
     Dosage: 900 MG,UNK
     Route: 065
     Dates: start: 20170825
  2. CYCLOSPORIN [Concomitant]
     Active Substance: CYCLOSPORINE
     Indication: PRODUCT USED FOR UNKNOWN INDICATION
     Dosage: 300MG BID
     Route: 065
  3. ATG                                /00575401/ [Concomitant]
     Active Substance: LAPINE T-LYMPHOCYTE IMMUNE GLOBULIN
  4. SOLIRIS [Suspect]
     Active Substance: ECULIZUMAB
     Dosage: UNK, Q2W
     Route: 065
  5. SOLIRIS [Suspect]
     Active Substance: ECULIZUMAB
     Indication: PAROXYSMAL NOCTURNAL HAEMOGLOBINURIA
     Dosage: 600MG, UNK
     Route: 065
     Dates: start: 20080501

REACTIONS (12)
  - Hyperglycaemia [Unknown]
  - Blood lactate dehydrogenase increased [Unknown]
  - Blood urea increased [Unknown]
  - Bone marrow disorder [Unknown]
  - Platelet count decreased [Unknown]
  - Blood creatinine increased [Unknown]
  - Anaemia [Unknown]
  - Alanine aminotransferase increased [Unknown]
  - Haemoglobinuria [Unknown]
  - Secondary hypertension [Unknown]
  - Aspartate aminotransferase increased [Unknown]
  - Obesity [Unknown]
